FAERS Safety Report 11209529 (Version 6)
Quarter: 2015Q3

REPORT INFORMATION
  Report Type: Report from Study
  Country: EC (occurrence: EC)
  Receive Date: 20150622
  Receipt Date: 20150922
  Transmission Date: 20151125
  Serious: Yes (Death, Hospitalization)
  Sender: FDA-Public Use
  Company Number: PHHY2015EC074351

PATIENT
  Age: 36 Year
  Sex: Male

DRUGS (2)
  1. TASIGNA [Suspect]
     Active Substance: NILOTINIB
     Indication: CHRONIC MYELOID LEUKAEMIA
     Dosage: 400 MG, QD
     Route: 048
     Dates: start: 20150321, end: 20150701
  2. TASIGNA [Suspect]
     Active Substance: NILOTINIB
     Dosage: 600 MG, QD
     Route: 048
     Dates: start: 20150702

REACTIONS (5)
  - Pelvic pain [Not Recovered/Not Resolved]
  - Cardio-respiratory arrest [Fatal]
  - Abdominal pain upper [Not Recovered/Not Resolved]
  - Dyspnoea [Fatal]
  - Mass [Unknown]

NARRATIVE: CASE EVENT DATE: 20150617
